FAERS Safety Report 15740937 (Version 1)
Quarter: 2018Q4

REPORT INFORMATION
  Report Type: Spontaneous
  Country: GB (occurrence: GB)
  Receive Date: 20181219
  Receipt Date: 20181219
  Transmission Date: 20190205
  Serious: Yes (Other)
  Sender: FDA-Public Use
  Company Number: GB-JNJFOC-20181024915

PATIENT
  Sex: Male

DRUGS (2)
  1. METHADONE [Suspect]
     Active Substance: METHADONE HYDROCHLORIDE
     Indication: PSORIATIC ARTHROPATHY
     Route: 065
     Dates: start: 201812
  2. SIMPONI [Suspect]
     Active Substance: GOLIMUMAB
     Indication: PSORIATIC ARTHROPATHY
     Route: 058
     Dates: start: 2018, end: 20181123

REACTIONS (10)
  - Insomnia [Unknown]
  - Hepatitis C [Unknown]
  - Epilepsy [Unknown]
  - Onychomadesis [Unknown]
  - Peripheral swelling [Unknown]
  - Abdominal pain lower [Not Recovered/Not Resolved]
  - Gastrooesophageal reflux disease [Unknown]
  - Anxiety [Unknown]
  - Depression [Unknown]
  - Psoriasis [Unknown]

NARRATIVE: CASE EVENT DATE: 2018
